FAERS Safety Report 4414679-1 (Version None)
Quarter: 2004Q3

REPORT INFORMATION
  Report Type: 
  Country: None (occurrence: None)
  Receive Date: 20040729
  Receipt Date: 20040707
  Transmission Date: 20050211
  Serious: Yes (Hospitalization, Other)
  Sender: FDA-Public Use
  Company Number: NSADSS2003016278

PATIENT
  Age: 63 Year
  Sex: Male
  Weight: 76.2043 kg

DRUGS (15)
  1. REMICADE [Suspect]
     Indication: CROHN'S DISEASE
     Dosage: SEE IMAGE
     Route: 041
     Dates: start: 20001116
  2. REMICADE [Suspect]
     Indication: PYODERMA GANGRENOSUM
     Dosage: SEE IMAGE
     Route: 041
     Dates: start: 20001116
  3. REMICADE [Suspect]
     Indication: CROHN'S DISEASE
     Dosage: SEE IMAGE
     Route: 041
     Dates: start: 20001128
  4. REMICADE [Suspect]
     Indication: PYODERMA GANGRENOSUM
     Dosage: SEE IMAGE
     Route: 041
     Dates: start: 20001128
  5. REMICADE [Suspect]
     Indication: CROHN'S DISEASE
     Dosage: SEE IMAGE
     Route: 041
     Dates: start: 20001220
  6. REMICADE [Suspect]
     Indication: PYODERMA GANGRENOSUM
     Dosage: SEE IMAGE
     Route: 041
     Dates: start: 20001220
  7. REMICADE [Suspect]
     Indication: CROHN'S DISEASE
     Dosage: SEE IMAGE
     Route: 041
     Dates: start: 20010201
  8. REMICADE [Suspect]
     Indication: PYODERMA GANGRENOSUM
     Dosage: SEE IMAGE
     Route: 041
     Dates: start: 20010201
  9. ULTRAM [Concomitant]
  10. IBUPROFEN [Concomitant]
  11. PENTASA [Concomitant]
  12. AZULFADINE (SULFASALAZINE) [Concomitant]
  13. PREVACID [Concomitant]
  14. MULTIVITAMIN [Concomitant]
  15. PREDNISONE [Concomitant]

REACTIONS (48)
  - ABDOMINAL PAIN LOWER [None]
  - ALCOHOL USE [None]
  - ANAL FISTULA [None]
  - ANTINUCLEAR ANTIBODY POSITIVE [None]
  - ARTHRALGIA [None]
  - ARTHRITIS INFECTIVE [None]
  - ASPARTATE AMINOTRANSFERASE INCREASED [None]
  - BLOOD BILIRUBIN INCREASED [None]
  - BLOOD LACTATE DEHYDROGENASE INCREASED [None]
  - BLOOD POTASSIUM INCREASED [None]
  - BLOODY DISCHARGE [None]
  - CAECITIS [None]
  - CARDIAC FAILURE CONGESTIVE [None]
  - CARDIOMEGALY [None]
  - CARPAL TUNNEL SYNDROME [None]
  - COLITIS [None]
  - DYSPEPSIA [None]
  - DYSPNOEA [None]
  - FEELING ABNORMAL [None]
  - FLANK PAIN [None]
  - HYPERTENSION [None]
  - INFUSION RELATED REACTION [None]
  - INJURY [None]
  - INSOMNIA [None]
  - JOINT SWELLING [None]
  - LETHARGY [None]
  - LIMB DISCOMFORT [None]
  - LIVER FUNCTION TEST ABNORMAL [None]
  - LOBAR PNEUMONIA [None]
  - LUNG INFILTRATION [None]
  - LUPUS-LIKE SYNDROME [None]
  - METASTATIC RENAL CELL CARCINOMA [None]
  - MUSCULOSKELETAL DISCOMFORT [None]
  - NEPHROLITHIASIS [None]
  - OEDEMA PERIPHERAL [None]
  - PAIN [None]
  - PERICARDIAL EFFUSION [None]
  - PERICARDITIS [None]
  - PLEURAL EFFUSION [None]
  - POST PROCEDURAL COMPLICATION [None]
  - RENAL CYST [None]
  - RENAL FAILURE [None]
  - RENAL MASS [None]
  - SINUS TACHYCARDIA [None]
  - STAPHYLOCOCCAL BACTERAEMIA [None]
  - VIRAL PHARYNGITIS [None]
  - WEIGHT INCREASED [None]
  - WHITE BLOOD CELL COUNT INCREASED [None]
